FAERS Safety Report 7877029-4 (Version None)
Quarter: 2011Q4

REPORT INFORMATION
  Report Type: 
  Country: None (occurrence: None)
  Receive Date: 20111031
  Receipt Date: 20111027
  Transmission Date: 20120403
  Serious: Yes (Life-Threatening, Hospitalization)
  Sender: FDA-Public Use
  Company Number: GB-ASTRAZENECA-2011SE64830

PATIENT
  Age: 84 Year
  Sex: Female
  Weight: 54 kg

DRUGS (5)
  1. OMEPRAZOLE [Suspect]
     Indication: DYSPEPSIA
     Route: 048
     Dates: start: 20110408, end: 20110428
  2. SIMVASTATIN [Concomitant]
  3. ASPIRIN [Concomitant]
  4. LANSOPRAZOLE [Concomitant]
  5. PROPRANOLOL [Concomitant]

REACTIONS (6)
  - SUICIDE ATTEMPT [None]
  - TINNITUS [None]
  - DEPRESSION [None]
  - HALLUCINATION, AUDITORY [None]
  - SUICIDAL IDEATION [None]
  - INTENTIONAL OVERDOSE [None]
